FAERS Safety Report 4310035-5 (Version None)
Quarter: 2004Q1

REPORT INFORMATION
  Report Type: 
  Country: None (occurrence: None)
  Receive Date: 20040303
  Receipt Date: 20040224
  Transmission Date: 20041129
  Serious: Yes (Death)
  Sender: FDA-Public Use
  Company Number: 200410754FR

PATIENT
  Age: 76 Year
  Sex: Male

DRUGS (11)
  1. LOVENOX [Suspect]
     Route: 058
     Dates: start: 20040112, end: 20040120
  2. ALDACTONE [Suspect]
     Route: 048
     Dates: end: 20040112
  3. AUGMENTIN [Suspect]
     Route: 042
     Dates: start: 20040112, end: 20040117
  4. COVERSYL [Suspect]
     Route: 048
     Dates: end: 20040112
  5. CORDARONE [Suspect]
     Route: 048
     Dates: end: 20040125
  6. KREDEX [Suspect]
     Route: 048
     Dates: end: 20040112
  7. LEVOTHYROXINE SODIUM [Concomitant]
     Route: 048
  8. LORAZEPAM [Concomitant]
     Route: 048
  9. DIAFUSOR [Concomitant]
     Route: 048
  10. DAFALGAN [Concomitant]
     Route: 048
  11. LASILIX [Concomitant]

REACTIONS (11)
  - BONE PAIN [None]
  - BRONCHIAL INFECTION [None]
  - CYTOLYTIC HEPATITIS [None]
  - GENERAL PHYSICAL HEALTH DETERIORATION [None]
  - HEPATIC CONGESTION [None]
  - HEPATIC FAILURE [None]
  - HEPATOCELLULAR DAMAGE [None]
  - HYPOTENSION [None]
  - MALIGNANT NEOPLASM PROGRESSION [None]
  - MULTIPLE MYELOMA [None]
  - PROTHROMBIN TIME PROLONGED [None]
